FAERS Safety Report 12225228 (Version 1)
Quarter: 2016Q1

REPORT INFORMATION
  Report Type: Spontaneous
  Country: DE (occurrence: DE)
  Receive Date: 20160331
  Receipt Date: 20160331
  Transmission Date: 20160526
  Serious: Yes (Other)
  Sender: FDA-Public Use
  Company Number: DE-GLAXOSMITHKLINE-DE2016GSK015488

PATIENT
  Sex: Female

DRUGS (1)
  1. ATMADISC FORTE [Suspect]
     Active Substance: FLUTICASONE FUROATE\SALMETEROL XINAFOATE
     Indication: PRODUCT USED FOR UNKNOWN INDICATION
     Dosage: UNK UNK, BID
     Dates: start: 200605, end: 201510

REACTIONS (12)
  - Nasopharyngitis [Unknown]
  - Chills [Recovering/Resolving]
  - Malaise [Unknown]
  - Pneumonia [Unknown]
  - Nasal obstruction [Unknown]
  - Chest discomfort [Unknown]
  - Chronic sinusitis [Recovering/Resolving]
  - Gastric disorder [Not Recovered/Not Resolved]
  - Oesophageal stenosis [Unknown]
  - Bronchitis [Unknown]
  - Bronchitis chronic [Unknown]
  - Gastritis [Unknown]

NARRATIVE: CASE EVENT DATE: 2006
